FAERS Safety Report 6819299-7 (Version None)
Quarter: 2010Q3

REPORT INFORMATION
  Report Type: 
  Country: None (occurrence: None)
  Receive Date: 20100707
  Receipt Date: 20100629
  Transmission Date: 20110219
  Serious: Yes (Other)
  Sender: FDA-Public Use
  Company Number: JP-BAYER-201012885BYL

PATIENT
  Age: 7 Week
  Sex: Male
  Weight: 53 kg

DRUGS (10)
  1. NEXAVAR [Suspect]
     Indication: RENAL CELL CARCINOMA
     Dosage: UNIT DOSE: 200 MG
     Route: 048
     Dates: start: 20090408, end: 20090420
  2. NEXAVAR [Suspect]
     Dosage: UNIT DOSE: 200 MG
     Route: 048
     Dates: start: 20090421
  3. NEXAVAR [Suspect]
     Dosage: UNIT DOSE: 200 MG
     Route: 048
     Dates: start: 20091110
  4. NEXAVAR [Suspect]
     Dosage: UNIT DOSE: 200 MG
     Route: 048
     Dates: start: 20090615
  5. NEXAVAR [Suspect]
     Dosage: UNIT DOSE: 200 MG
     Route: 048
     Dates: start: 20100112
  6. ASPIRIN [Concomitant]
     Dosage: UNIT DOSE: 100 MG
     Route: 048
     Dates: start: 20090408
  7. ITOROL [Concomitant]
     Route: 048
     Dates: start: 20090408
  8. MAGMITT [Concomitant]
     Route: 048
     Dates: start: 20090408
  9. NOVORAPID [Concomitant]
     Route: 058
     Dates: start: 20090408
  10. AZUNOL [Concomitant]
     Indication: PROPHYLAXIS
     Route: 061
     Dates: start: 20090408

REACTIONS (3)
  - DIARRHOEA [None]
  - HEPATIC FUNCTION ABNORMAL [None]
  - PALMAR-PLANTAR ERYTHRODYSAESTHESIA SYNDROME [None]
